FAERS Safety Report 14196329 (Version 3)
Quarter: 2018Q1

REPORT INFORMATION
  Report Type: Spontaneous
  Country: US (occurrence: US)
  Receive Date: 20171116
  Receipt Date: 20180206
  Transmission Date: 20180508
  Serious: No
  Sender: FDA-Public Use
  Company Number: US-JNJFOC-20171112656

PATIENT
  Age: 84 Year
  Sex: Male

DRUGS (2)
  1. GALANTAMINE HBR [Suspect]
     Active Substance: GALANTAMINE HYDROBROMIDE
     Indication: PRODUCT USED FOR UNKNOWN INDICATION
     Route: 048
     Dates: start: 201706, end: 201708
  2. GALANTAMINE HBR [Suspect]
     Active Substance: GALANTAMINE HYDROBROMIDE
     Indication: PRODUCT USED FOR UNKNOWN INDICATION
     Route: 048
     Dates: start: 20170828

REACTIONS (4)
  - Product shape issue [Unknown]
  - Drug dose omission [Unknown]
  - Product quality issue [Unknown]
  - Adverse reaction [Unknown]

NARRATIVE: CASE EVENT DATE: 2017
